FAERS Safety Report 15666066 (Version 2)
Quarter: 2019Q2

REPORT INFORMATION
  Report Type: Report from Study
  Country: GB (occurrence: GB)
  Receive Date: 20181128
  Receipt Date: 20190531
  Transmission Date: 20190711
  Serious: Yes (Other)
  Sender: FDA-Public Use
  Company Number: PHHY2018GB162529

PATIENT
  Age: 56 Year
  Sex: Female

DRUGS (2)
  1. ERELZI [Suspect]
     Active Substance: ETANERCEPT-SZZS
     Indication: ANKYLOSING SPONDYLITIS
     Dosage: 50 MG, QW, PRE-FILLED PEN
     Route: 058
     Dates: start: 201711
  2. ERELZI [Suspect]
     Active Substance: ETANERCEPT-SZZS
     Dosage: 50 MG, QW, PRE-FILLED PEN
     Route: 058
     Dates: start: 201802

REACTIONS (6)
  - Injection site haemorrhage [Recovered/Resolved]
  - Device issue [Unknown]
  - Fear of injection [Unknown]
  - Needle track marks [Unknown]
  - Malaise [Unknown]
  - Injury associated with device [Unknown]

NARRATIVE: CASE EVENT DATE: 20181003
